FAERS Safety Report 4875312-8 (Version None)
Quarter: 2006Q1

REPORT INFORMATION
  Report Type: 
  Country: None (occurrence: None)
  Receive Date: 20060109
  Receipt Date: 20051227
  Transmission Date: 20060701
  Serious: Yes (Hospitalization)
  Sender: FDA-Public Use
  Company Number: US-MERCK-0512USA03994

PATIENT
  Age: 61 Year
  Sex: Female
  Weight: 82 kg

DRUGS (11)
  1. VIOXX [Suspect]
     Indication: ARTHRITIS
     Route: 048
     Dates: start: 20010901, end: 20040501
  2. AMARYL [Concomitant]
     Route: 065
  3. LIPITOR [Concomitant]
     Route: 065
  4. GLUCOPHAGE [Concomitant]
     Route: 065
  5. DOXEPIN HYDROCHLORIDE [Concomitant]
     Route: 065
  6. PREMPHASE 14/14 [Concomitant]
     Route: 065
  7. ACETAMINOPHEN AND PROPOXYPHENE NAPSYLATE [Concomitant]
     Route: 065
  8. NEURONTIN [Concomitant]
     Route: 065
  9. PARAFON FORTE [Concomitant]
     Route: 065
  10. TRAZODONE HYDROCHLORIDE [Concomitant]
     Route: 065
  11. CALCIUM (UNSPECIFIED) [Concomitant]
     Route: 065

REACTIONS (24)
  - ACUTE MYOCARDIAL INFARCTION [None]
  - ANAEMIA [None]
  - ARTERIOSCLEROSIS CORONARY ARTERY [None]
  - BACK PAIN [None]
  - CARDIAC FAILURE CONGESTIVE [None]
  - CHEST PAIN [None]
  - CHRONIC OBSTRUCTIVE PULMONARY DISEASE [None]
  - CONSTIPATION [None]
  - COUGH [None]
  - DIABETES MELLITUS INADEQUATE CONTROL [None]
  - DUODENAL ULCER [None]
  - GASTRIC ULCER PERFORATION [None]
  - GASTROOESOPHAGEAL REFLUX DISEASE [None]
  - HIATUS HERNIA [None]
  - HYPERLIPIDAEMIA [None]
  - INTERVERTEBRAL DISC DEGENERATION [None]
  - IRON DEFICIENCY ANAEMIA [None]
  - MYOCARDIAL ISCHAEMIA [None]
  - OBESITY [None]
  - PNEUMONIA [None]
  - REFLUX OESOPHAGITIS [None]
  - SPINAL DISORDER [None]
  - URINARY TRACT INFECTION [None]
  - VITAMIN B12 DEFICIENCY [None]
